FAERS Safety Report 7032565-8 (Version None)
Quarter: 2010Q4

REPORT INFORMATION
  Report Type: 
  Country: None (occurrence: None)
  Receive Date: 20101007
  Receipt Date: 20101001
  Transmission Date: 20110411
  Serious: Yes (Life-Threatening, Hospitalization)
  Sender: FDA-Public Use
  Company Number: JP-ROCHE-695851

PATIENT
  Sex: Male
  Weight: 52 kg

DRUGS (9)
  1. AVASTIN [Suspect]
     Indication: RECTAL CANCER METASTATIC
     Dosage: FORM: INJECTION.
     Route: 041
     Dates: start: 20100330, end: 20100330
  2. LEUCOVORIN CALCIUM [Concomitant]
     Dosage: FORM: INJECTION
     Route: 041
     Dates: start: 20100330, end: 20100330
  3. DEXART [Concomitant]
     Dosage: ROUTE: INTRAVENOUS (NOT OTHERWISE SPECIFIED), FORM: INJECTION
     Route: 042
     Dates: start: 20100330, end: 20100330
  4. KYTRIL [Concomitant]
     Dosage: DRUG: KYTRIL INJECTION, ROUTE: INTRAVENOUS (NOT OTHERWISE SPECIFIED), FORM: INJECTION
     Route: 042
     Dates: start: 20100330, end: 20100330
  5. ELPLAT [Concomitant]
     Route: 041
  6. FLUOROURACIL [Concomitant]
     Route: 041
  7. FERROMIA [Concomitant]
     Route: 048
  8. MAGNESIUM OXIDE [Concomitant]
     Route: 048
  9. CINAL [Concomitant]
     Route: 048

REACTIONS (3)
  - GASTROINTESTINAL PERFORATION [None]
  - PERITONITIS [None]
  - SEPSIS [None]
